FAERS Safety Report 13174996 (Version 2)
Quarter: 2018Q1

REPORT INFORMATION
  Report Type: Spontaneous
  Country: US (occurrence: US)
  Receive Date: 20170201
  Receipt Date: 20180125
  Transmission Date: 20180508
  Serious: No
  Sender: FDA-Public Use
  Company Number: US-ABBVIE-16P-163-1550899-00

PATIENT
  Sex: Female

DRUGS (1)
  1. HUMIRA [Suspect]
     Active Substance: ADALIMUMAB
     Indication: PRODUCT USED FOR UNKNOWN INDICATION
     Route: 058

REACTIONS (5)
  - Hidradenitis [Unknown]
  - Bloody discharge [Unknown]
  - Dermatitis contact [Unknown]
  - Pain of skin [Unknown]
  - Papule [Unknown]

NARRATIVE: CASE EVENT DATE: 2017
